FAERS Safety Report 9919686 (Version 3)
Quarter: 2014Q2

REPORT INFORMATION
  Report Type: Spontaneous
  Country: IT (occurrence: IT)
  Receive Date: 20140224
  Receipt Date: 20140602
  Transmission Date: 20141212
  Serious: Yes (Hospitalization)
  Sender: FDA-Public Use
  Company Number: IT-BRISTOL-MYERS SQUIBB COMPANY-20247771

PATIENT
  Age: 80 Year
  Sex: Male

DRUGS (9)
  1. METFORMIN HCL [Suspect]
     Indication: DIABETES MELLITUS
     Route: 048
     Dates: start: 20120101, end: 20140112
  2. HUMALOG [Suspect]
     Indication: DIABETES MELLITUS
     Dosage: 1DF: 100U/ML,SOLN FOR INJ,3MLX5CARTRIDGES FOR SUBCUTANEOUS AND IV USE
     Dates: start: 20120101, end: 20140112
  3. HUMULIN [Suspect]
     Indication: DIABETES MELLITUS
     Dosage: 1DF: 30/70,10ML BOTTLE 100U/ML
     Dates: start: 20120101, end: 20140112
  4. TRIATEC [Concomitant]
     Indication: HYPERTENSION
     Dosage: 28X10MG DIVISIBLE TABS
  5. ZYLORIC [Concomitant]
  6. COAPROVEL [Concomitant]
     Indication: HYPERTENSION
  7. CARDURA [Concomitant]
  8. SEROQUEL [Concomitant]
     Indication: SENILE DEMENTIA
     Dosage: 1DF: 30X 25 MG,FILM-COATED TABS
  9. ACETYLSALICYLIC ACID [Concomitant]

REACTIONS (1)
  - Hypoglycaemic coma [Recovered/Resolved]
